FAERS Safety Report 9175770 (Version 2)
Quarter: 2013Q2

REPORT INFORMATION
  Report Type: Spontaneous
  Country: US (occurrence: US)
  Receive Date: 20130320
  Receipt Date: 20130426
  Transmission Date: 20140414
  Serious: Yes (Other)
  Sender: FDA-Public Use
  Company Number: US-PFIZER INC-2013091119

PATIENT
  Age: 53 Year
  Sex: Male
  Weight: 83.9 kg

DRUGS (11)
  1. DILANTIN [Suspect]
     Indication: CONVULSION
     Dosage: 100 MG, 3X/DAY
     Route: 048
     Dates: start: 20120928, end: 201302
  2. DILANTIN [Suspect]
     Indication: BIPOLAR DISORDER
     Dosage: 100 MG, 3X/DAY
     Route: 048
     Dates: start: 201302, end: 201303
  3. DILANTIN [Suspect]
     Dosage: 100 MG, 3X/DAY
     Route: 048
     Dates: start: 201303
  4. DILANTIN [Suspect]
     Dosage: 300 MG, 1X/DAY
     Route: 048
     Dates: start: 1963
  5. DILANTIN [Suspect]
     Dosage: 500 MG, 1X/DAY
     Route: 048
     Dates: start: 20130408
  6. DEPAKOTE [Suspect]
     Indication: CONVULSION
     Dosage: UNK
  7. HYDROCHLOROTHIAZIDE [Concomitant]
     Indication: BLOOD PRESSURE ABNORMAL
     Dosage: UNK
  8. NEXIUM [Concomitant]
     Indication: DYSPEPSIA
     Dosage: 40 MG, 1X/DAY
  9. NEXIUM [Concomitant]
     Indication: OESOPHAGEAL DISORDER
  10. NEURONTIN [Concomitant]
     Dosage: 300 MG, 2X/DAY
  11. PHENOBARBITAL [Concomitant]
     Dosage: 100 MG, UNK

REACTIONS (5)
  - Drug ineffective [Unknown]
  - Expired drug administered [Unknown]
  - Hypersensitivity [Unknown]
  - Influenza [Unknown]
  - Pruritus generalised [Unknown]
